FAERS Safety Report 9721547 (Version 2)
Quarter: 2015Q1

REPORT INFORMATION
  Report Type: Report from Study
  Country: KR (occurrence: KR)
  Receive Date: 20131130
  Receipt Date: 20150108
  Transmission Date: 20150721
  Serious: Yes (Other)
  Sender: FDA-Public Use
  Company Number: PHHY2013KR138347

PATIENT
  Age: 61 Year
  Sex: Female

DRUGS (10)
  1. MOTILIDONE [Concomitant]
     Indication: DYSPEPSIA
     Dosage: 3 DF, UNK
     Route: 048
     Dates: start: 20131023, end: 20131105
  2. AMN107 [Suspect]
     Active Substance: NILOTINIB
     Route: 048
     Dates: start: 20131017, end: 20131031
  3. TACOPEN [Concomitant]
     Indication: BONE PAIN
     Dosage: 3 DF, UNK
     Route: 048
     Dates: start: 20130924, end: 20131006
  4. CLOBETASOL 17 PROP [Concomitant]
     Indication: TINEA VERSICOLOUR
     Dosage: 1 DF, UNK
     Route: 061
     Dates: start: 20131021, end: 20131028
  5. DUOLIN                             /01033501/ [Concomitant]
     Indication: TINEA VERSICOLOUR
     Dosage: 1 DF, UNK
     Route: 061
     Dates: start: 20131021, end: 20131028
  6. DUOLIN                             /01033501/ [Concomitant]
     Indication: PALMAR-PLANTAR ERYTHRODYSAESTHESIA SYNDROME
  7. AMN107 [Suspect]
     Active Substance: NILOTINIB
     Indication: CHRONIC MYELOID LEUKAEMIA
     Route: 048
     Dates: start: 20130930, end: 20131007
  8. VILDAGLIPTIN [Concomitant]
     Active Substance: VILDAGLIPTIN
     Indication: DIABETES MELLITUS
     Dosage: 1 DF, UNK
     Route: 048
     Dates: start: 20131011
  9. CLOBETASOL 17 PROP [Concomitant]
     Indication: PALMAR-PLANTAR ERYTHRODYSAESTHESIA SYNDROME
  10. AMARYL M [Concomitant]
     Active Substance: GLIMEPIRIDE\METFORMIN
     Indication: DIABETES MELLITUS
     Dosage: 1 DF, UNK
     Route: 048
     Dates: start: 20131028

REACTIONS (2)
  - Vomiting [Recovered/Resolved]
  - Nausea [Recovered/Resolved]

NARRATIVE: CASE EVENT DATE: 20131007
